FAERS Safety Report 8410277-3 (Version None)
Quarter: 2012Q2

REPORT INFORMATION
  Report Type: 
  Country: None (occurrence: None)
  Receive Date: 20120605
  Receipt Date: 20120604
  Transmission Date: 20120825
  Serious: Yes (Hospitalization, Other)
  Sender: FDA-Public Use
  Company Number: PHEH2009US13008

PATIENT
  Sex: Female

DRUGS (17)
  1. AREDIA [Suspect]
     Indication: BONE LOSS
     Dosage: 90 MG
     Route: 042
     Dates: end: 20060101
  2. HERCEPTIN [Concomitant]
  3. COMPAZINE [Concomitant]
  4. VICODIN [Concomitant]
  5. ZOMETA [Suspect]
     Indication: BREAST CANCER METASTATIC
  6. TAMOXIFEN CITRATE [Concomitant]
  7. LORAZEPAM [Concomitant]
  8. IMDUR [Concomitant]
  9. ZOMETA [Suspect]
     Indication: OSTEOPOROSIS
  10. OXYCONTIN [Concomitant]
  11. ZOFRAN [Concomitant]
  12. AVASTIN [Concomitant]
  13. TAXOTERE [Concomitant]
  14. AREDIA [Suspect]
     Indication: OSTEOPOROSIS
  15. ZOMETA [Suspect]
     Indication: BONE LOSS
     Dosage: 4 MG, UNK
     Route: 042
     Dates: start: 20060201, end: 20060322
  16. CYTOXAN [Concomitant]
  17. ACIPHEX [Concomitant]

REACTIONS (51)
  - VOMITING [None]
  - DIARRHOEA [None]
  - WOUND DEHISCENCE [None]
  - PROTEINURIA [None]
  - SPINAL OSTEOARTHRITIS [None]
  - VASCULAR CALCIFICATION [None]
  - INJURY [None]
  - EXPOSED BONE IN JAW [None]
  - PAIN [None]
  - POLYNEUROPATHY [None]
  - ARTERIOSCLEROSIS CORONARY ARTERY [None]
  - LACERATION [None]
  - ARTERIOSPASM CORONARY [None]
  - VENTRICULAR HYPOKINESIA [None]
  - HYPOAESTHESIA [None]
  - PARAESTHESIA [None]
  - DYSLIPIDAEMIA [None]
  - GASTROOESOPHAGEAL REFLUX DISEASE [None]
  - GASTRITIS [None]
  - GINGIVAL PAIN [None]
  - ARTHRALGIA [None]
  - FATIGUE [None]
  - ABDOMINAL PAIN [None]
  - PRIMARY SEQUESTRUM [None]
  - MITRAL VALVE INCOMPETENCE [None]
  - ATELECTASIS [None]
  - NORMOCHROMIC NORMOCYTIC ANAEMIA [None]
  - CONTUSION [None]
  - OSTEONECROSIS OF JAW [None]
  - RETINOPATHY HYPERTENSIVE [None]
  - ESSENTIAL HYPERTENSION [None]
  - URINARY TRACT INFECTION [None]
  - DYSURIA [None]
  - TENDERNESS [None]
  - MUSCULOSKELETAL CHEST PAIN [None]
  - NAUSEA [None]
  - OSTEOMYELITIS [None]
  - SKIN PAPILLOMA [None]
  - EMOTIONAL DISTRESS [None]
  - DYSPNOEA [None]
  - ANGINA UNSTABLE [None]
  - AORTIC VALVE INCOMPETENCE [None]
  - CARDIOMYOPATHY [None]
  - BREAST CANCER METASTATIC [None]
  - LEUKOPENIA [None]
  - HYPERCHOLESTEROLAEMIA [None]
  - TRICUSPID VALVE INCOMPETENCE [None]
  - QRS AXIS ABNORMAL [None]
  - LEFT VENTRICULAR HYPERTROPHY [None]
  - BONE PAIN [None]
  - INGROWING NAIL [None]
